FAERS Safety Report 15464592 (Version 2)
Quarter: 2018Q4

REPORT INFORMATION
  Report Type: Spontaneous
  Country: US (occurrence: US)
  Receive Date: 20181004
  Receipt Date: 20181004
  Transmission Date: 20190204
  Serious: No
  Sender: FDA-Public Use
  Company Number: US-MELINTA-US-MDCO-17-00598

PATIENT
  Age: 70 Year
  Sex: Female

DRUGS (2)
  1. ORBACTIV [Suspect]
     Active Substance: ORITAVANCIN
     Indication: CELLULITIS
     Dosage: NOT PROVIDED
     Route: 041
  2. DAPTO [Concomitant]
     Indication: CELLULITIS

REACTIONS (3)
  - Pruritus [Recovering/Resolving]
  - Rash [Recovered/Resolved]
  - Drug intolerance [Unknown]
